FAERS Safety Report 6756683-4 (Version None)
Quarter: 2010Q2

REPORT INFORMATION
  Report Type: 
  Country: None (occurrence: None)
  Receive Date: 20100604
  Receipt Date: 20100524
  Transmission Date: 20101027
  Serious: Yes (Other)
  Sender: FDA-Public Use
  Company Number: GB-WATSON-2010-06691

PATIENT

DRUGS (4)
  1. SIMVASTATIN [Suspect]
     Indication: BLOOD CHOLESTEROL INCREASED
     Dosage: 40 MG, UNK
     Dates: start: 20031201, end: 20100330
  2. BISOPROLOL [Concomitant]
     Indication: HEART RATE IRREGULAR
     Dosage: UNK
     Dates: start: 20080601
  3. DIGOXIN [Concomitant]
     Indication: HEART RATE IRREGULAR
     Dosage: 1 1/4 MCG, UNK
     Dates: start: 20031212
  4. WARFARIN SODIUM [Concomitant]
     Indication: THROMBOSIS PROPHYLAXIS
     Dosage: UNK
     Dates: start: 20011212

REACTIONS (3)
  - AMNESIA [None]
  - MOOD SWINGS [None]
  - PAIN IN EXTREMITY [None]
